FAERS Safety Report 8490734-4 (Version None)
Quarter: 2012Q3

REPORT INFORMATION
  Report Type: 
  Country: None (occurrence: None)
  Receive Date: 20120706
  Receipt Date: 20090916
  Transmission Date: 20120928
  Serious: Yes (Disabling)
  Sender: FDA-Public Use
  Company Number: GB-AMGEN-UK356999

PATIENT
  Age: 83 Year
  Sex: Female

DRUGS (4)
  1. CETRIZIN [Concomitant]
     Dosage: 10 MG, QD
     Route: 048
     Dates: start: 20090706
  2. DENOSUMAB [Suspect]
     Indication: OSTEOPOROSIS POSTMENOPAUSAL
     Dosage: 60 MG, Q6MO
     Route: 058
     Dates: start: 20080109
  3. HYPROMELLOSE [Concomitant]
     Dosage: UNK UNK, UNK
     Dates: end: 20090101
  4. MUPIROCIN [Concomitant]
     Dosage: UNK UNK, BID
     Route: 061
     Dates: start: 20090601

REACTIONS (1)
  - RETINAL HAEMORRHAGE [None]
